FAERS Safety Report 16426213 (Version 1)
Quarter: 2019Q2

REPORT INFORMATION
  Report Type: Spontaneous
  Country: BR (occurrence: BR)
  Receive Date: 20190613
  Receipt Date: 20190613
  Transmission Date: 20190711
  Serious: Yes (Hospitalization, Other)
  Sender: FDA-Public Use
  Company Number: BR-JNJFOC-20190607117

PATIENT
  Age: 40 Year
  Sex: Female
  Weight: 97 kg

DRUGS (5)
  1. DORENE [Concomitant]
     Active Substance: PREGABALIN
     Route: 065
     Dates: start: 2015
  2. TOPIRAMATE. [Suspect]
     Active Substance: TOPIRAMATE
     Indication: PRODUCT USED FOR UNKNOWN INDICATION
     Route: 048
  3. VENLIFT [Concomitant]
     Active Substance: VENLAFAXINE HYDROCHLORIDE
     Route: 065
     Dates: start: 2015
  4. BUPROPION. [Concomitant]
     Active Substance: BUPROPION
     Route: 065
     Dates: start: 2015
  5. QUETIAPINE. [Concomitant]
     Active Substance: QUETIAPINE
     Route: 065
     Dates: start: 2015

REACTIONS (4)
  - Suicide attempt [Unknown]
  - Metabolic surgery [Unknown]
  - Seizure [Unknown]
  - Seminal vesicle operation [Unknown]

NARRATIVE: CASE EVENT DATE: 2015
